FAERS Safety Report 5866481-1 (Version None)
Quarter: 2008Q3

REPORT INFORMATION
  Report Type: 
  Country: None (occurrence: None)
  Receive Date: 20080902
  Receipt Date: 20080822
  Transmission Date: 20090109
  Serious: Yes (Other)
  Sender: FDA-Public Use
  Company Number: PHHY2008GB11473

PATIENT
  Sex: Female
  Weight: 47 kg

DRUGS (1)
  1. NEORAL [Suspect]
     Indication: RENAL TRANSPLANT
     Dosage: 25 MG/DAY
     Route: 048

REACTIONS (2)
  - CRYING [None]
  - SUICIDAL IDEATION [None]
